FAERS Safety Report 10483021 (Version 1)
Quarter: 2014Q3

REPORT INFORMATION
  Report Type: Spontaneous
  Country: CH (occurrence: CH)
  Receive Date: 20140930
  Receipt Date: 20140930
  Transmission Date: 20150326
  Serious: Yes (Other)
  Sender: FDA-Public Use
  Company Number: CH-ABBVIE-14K-151-1288220-00

PATIENT
  Age: 20 Year
  Sex: Female

DRUGS (4)
  1. HUMIRA [Suspect]
     Active Substance: ADALIMUMAB
     Indication: CROHN^S DISEASE
     Route: 058
     Dates: start: 201110, end: 201406
  2. PREDNISONUM [Suspect]
     Active Substance: PREDNISONE
     Indication: PRODUCT USED FOR UNKNOWN INDICATION
  3. VALACICLOVIRUM [Suspect]
     Active Substance: VALACYCLOVIR HYDROCHLORIDE
  4. VALACICLOVIRUM [Suspect]
     Active Substance: VALACYCLOVIR HYDROCHLORIDE
     Indication: PRODUCT USED FOR UNKNOWN INDICATION

REACTIONS (9)
  - Mouth ulceration [Unknown]
  - Erythema multiforme [Unknown]
  - Herpes simplex [Unknown]
  - Toxic skin eruption [Recovered/Resolved]
  - Mouth ulceration [Unknown]
  - Drug ineffective [Unknown]
  - Dermatosis [Unknown]
  - Skin papilloma [Not Recovered/Not Resolved]
  - Eczema [Unknown]

NARRATIVE: CASE EVENT DATE: 201303
